FAERS Safety Report 20976922 (Version 2)
Quarter: 2022Q3

REPORT INFORMATION
  Report Type: Spontaneous
  Country: US (occurrence: US)
  Receive Date: 20220617
  Receipt Date: 20220704
  Transmission Date: 20221027
  Serious: Yes (Other)
  Sender: FDA-Public Use
  Company Number: US-ASTELLAS-2022US021931

PATIENT
  Age: 83 Year
  Sex: Female

DRUGS (3)
  1. MYRBETRIQ [Suspect]
     Active Substance: MIRABEGRON
     Indication: Micturition urgency
     Route: 065
  2. MYRBETRIQ [Suspect]
     Active Substance: MIRABEGRON
     Indication: Micturition urgency
     Route: 065
     Dates: start: 2020
  3. MYRBETRIQ [Suspect]
     Active Substance: MIRABEGRON
     Route: 065

REACTIONS (5)
  - Nervousness [Unknown]
  - Pruritus [Unknown]
  - Blood pressure increased [Recovering/Resolving]
  - Sleep disorder [Unknown]
  - Therapeutic product effect incomplete [Unknown]
